FAERS Safety Report 8590428-0 (Version None)
Quarter: 2012Q3

REPORT INFORMATION
  Report Type: 
  Country: None (occurrence: None)
  Receive Date: 20120813
  Receipt Date: 20120801
  Transmission Date: 20120928
  Serious: Yes (Hospitalization, Other)
  Sender: FDA-Public Use
  Company Number: US-009507513-1203USA02839

PATIENT

DRUGS (9)
  1. FOSAMAX [Suspect]
     Dosage: 70 MG, UNK
     Route: 048
     Dates: start: 20020118, end: 20080301
  2. VITAMINS (UNSPECIFIED) [Concomitant]
     Dosage: UNK UNK, QD
     Dates: start: 19950101
  3. ALENDRONATE SODIUM [Suspect]
     Indication: OSTEOPENIA
     Dosage: 70 MG, UNK
     Dates: start: 20080301, end: 20100101
  4. ALENDRONATE SODIUM [Suspect]
     Indication: OSTEOPOROSIS
  5. FOSAMAX [Suspect]
     Indication: OSTEOPOROSIS
     Dosage: 10 MG, UNK
     Route: 048
     Dates: start: 20011101, end: 20011201
  6. CALCIUM (UNSPECIFIED) [Concomitant]
     Dosage: 600 MG, BID
     Dates: start: 19950101
  7. ATENOLOL [Concomitant]
     Indication: HYPERTENSION
  8. FOSAMAX [Suspect]
     Indication: OSTEOPENIA
     Dosage: 5 MG, UNK
     Route: 048
     Dates: start: 19981119, end: 20011101
  9. ZYRTEC [Concomitant]
     Indication: HYPERSENSITIVITY
     Dosage: UNK
     Dates: start: 20050101, end: 20070101

REACTIONS (47)
  - FEMUR FRACTURE [None]
  - HYSTERECTOMY [None]
  - RENAL FAILURE CHRONIC [None]
  - SURGERY [None]
  - ADVERSE EVENT [None]
  - PAIN [None]
  - FALL [None]
  - ENDODONTIC PROCEDURE [None]
  - NASAL CONGESTION [None]
  - AORTIC DILATATION [None]
  - PULMONARY HYPERTENSION [None]
  - AORTIC CALCIFICATION [None]
  - WOUND INFECTION STAPHYLOCOCCAL [None]
  - ANAEMIA [None]
  - NEUROSTIMULATOR IMPLANTATION [None]
  - TRANSIENT ISCHAEMIC ATTACK [None]
  - AORTIC VALVE INCOMPETENCE [None]
  - MITRAL VALVE PROLAPSE [None]
  - STRESS URINARY INCONTINENCE [None]
  - LEUKOCYTOSIS [None]
  - LOW TURNOVER OSTEOPATHY [None]
  - HYPERTONIC BLADDER [None]
  - RADICULAR SYNDROME [None]
  - TRICUSPID VALVE INCOMPETENCE [None]
  - COUGH [None]
  - CARDIAC FAILURE CONGESTIVE [None]
  - PYELONEPHRITIS [None]
  - BACK PAIN [None]
  - DIARRHOEA [None]
  - CHOLECYSTECTOMY [None]
  - HYPOTHYROIDISM [None]
  - KYPHOSCOLIOSIS [None]
  - AORTIC VALVE SCLEROSIS [None]
  - BIOPSY BREAST [None]
  - ASTHMA [None]
  - RHINITIS [None]
  - OESOPHAGEAL STENOSIS [None]
  - GASTROOESOPHAGEAL REFLUX DISEASE [None]
  - GASTRITIS [None]
  - HYPERCHOLESTEROLAEMIA [None]
  - MITRAL VALVE INCOMPETENCE [None]
  - UPPER-AIRWAY COUGH SYNDROME [None]
  - DEPRESSION [None]
  - OSTEOARTHRITIS [None]
  - POST LAMINECTOMY SYNDROME [None]
  - CHRONIC OBSTRUCTIVE PULMONARY DISEASE [None]
  - CARDIOMEGALY [None]
